FAERS Safety Report 18545851 (Version 6)
Quarter: 2021Q3

REPORT INFORMATION
  Report Type: Report from Study
  Country: US (occurrence: US)
  Receive Date: 20201125
  Receipt Date: 20210702
  Transmission Date: 20211014
  Serious: Yes (Hospitalization)
  Sender: FDA-Public Use
  Company Number: US-AGIOS-2011US02291

PATIENT

DRUGS (7)
  1. ACYCLOVIR                          /00587301/ [Concomitant]
     Active Substance: ACYCLOVIR
     Route: 065
  2. FLUCONAZOLE. [Concomitant]
     Active Substance: FLUCONAZOLE
     Route: 065
  3. CEFPODOXIME [Concomitant]
     Active Substance: CEFPODOXIME
     Route: 065
  4. TIBSOVO [Suspect]
     Active Substance: IVOSIDENIB
     Indication: CHRONIC MYELOMONOCYTIC LEUKAEMIA
     Dosage: 250MG, 2 TABLETS (500MG) DAILY
     Route: 048
     Dates: start: 20201104
  5. TIBSOVO [Suspect]
     Active Substance: IVOSIDENIB
     Dosage: 250MG, 2 TABLETS (500MG) DAILY
     Route: 048
     Dates: start: 20201117
  6. TIBSOVO [Suspect]
     Active Substance: IVOSIDENIB
     Dosage: 250MG, 2 TABLETS (500MG) DAILY
     Route: 048
     Dates: start: 20201117
  7. TIBSOVO [Suspect]
     Active Substance: IVOSIDENIB
     Dosage: 250MG, 2 TABLETS (500MG) DAILY
     Route: 048
     Dates: start: 20201106

REACTIONS (19)
  - Blood count abnormal [Unknown]
  - Cardiac disorder [Unknown]
  - Feeling abnormal [Unknown]
  - Diarrhoea [Unknown]
  - Platelet count decreased [Recovering/Resolving]
  - Off label use [Unknown]
  - White blood cell count abnormal [Recovering/Resolving]
  - Petechiae [Unknown]
  - Speech disorder [Recovered/Resolved]
  - Blood pressure increased [Unknown]
  - Malaise [Unknown]
  - Product dose omission issue [Unknown]
  - Heart rate increased [Unknown]
  - Red blood cell count decreased [Recovering/Resolving]
  - Nasopharyngitis [Unknown]
  - Decreased appetite [Unknown]
  - Sensory loss [Recovered/Resolved]
  - Abdominal discomfort [Unknown]
  - Headache [Unknown]

NARRATIVE: CASE EVENT DATE: 20201106
